FAERS Safety Report 23381446 (Version 2)
Quarter: 2024Q1

REPORT INFORMATION
  Report Type: Report from Study
  Country: CA (occurrence: None)
  Receive Date: 20240109
  Receipt Date: 20240216
  Transmission Date: 20240410
  Serious: Yes (Other)
  Sender: FDA-Public Use
  Company Number: CA-PFIZER INC-202400002373

PATIENT
  Age: 21 Year
  Sex: Female

DRUGS (34)
  1. METHOTREXATE [Interacting]
     Active Substance: METHOTREXATE
     Indication: Product used for unknown indication
  2. METHOTREXATE [Interacting]
     Active Substance: METHOTREXATE
  3. METHOTREXATE [Interacting]
     Active Substance: METHOTREXATE
  4. METHOTREXATE [Interacting]
     Active Substance: METHOTREXATE
  5. METHOTREXATE [Interacting]
     Active Substance: METHOTREXATE
  6. METHOTREXATE [Interacting]
     Active Substance: METHOTREXATE
  7. METHOTREXATE [Interacting]
     Active Substance: METHOTREXATE
  8. FOLIC ACID [Interacting]
     Active Substance: FOLIC ACID
     Indication: Product used for unknown indication
  9. FOLIC ACID [Interacting]
     Active Substance: FOLIC ACID
  10. LEFLUNOMIDE [Interacting]
     Active Substance: LEFLUNOMIDE
     Indication: Product used for unknown indication
  11. MOXIFLOXACIN HYDROCHLORIDE [Interacting]
     Active Substance: MOXIFLOXACIN HYDROCHLORIDE\MOXIFLOXACIN HYDROCHLORIDE MONOHYDRATE
     Indication: Product used for unknown indication
  12. MOXIFLOXACIN HYDROCHLORIDE [Interacting]
     Active Substance: MOXIFLOXACIN HYDROCHLORIDE\MOXIFLOXACIN HYDROCHLORIDE MONOHYDRATE
  13. AMOXICILLIN [Concomitant]
     Active Substance: AMOXICILLIN
  14. LORAZEPAM [Concomitant]
     Active Substance: LORAZEPAM
  15. CETIRIZINE [Concomitant]
     Active Substance: CETIRIZINE HYDROCHLORIDE
  16. DANAZOL [Concomitant]
     Active Substance: DANAZOL
     Indication: Endometriosis
  17. DEXAMETHASONE [Concomitant]
     Active Substance: DEXAMETHASONE
  18. ENBREL [Concomitant]
     Active Substance: ETANERCEPT
  19. FUSIDIC ACID [Concomitant]
     Active Substance: FUSIDIC ACID
  20. HUMIRA [Concomitant]
     Active Substance: ADALIMUMAB
  21. IBUPROFEN [Concomitant]
     Active Substance: IBUPROFEN
  22. MARVELON [Concomitant]
     Active Substance: DESOGESTREL\ETHINYL ESTRADIOL
  23. NAPROXEN [Concomitant]
     Active Substance: NAPROXEN
  24. PREDNISONE [Concomitant]
     Active Substance: PREDNISONE
  25. PREDNISONE [Concomitant]
     Active Substance: PREDNISONE
  26. SIMPONI [Concomitant]
     Active Substance: GOLIMUMAB
  27. SIMPONI [Concomitant]
     Active Substance: GOLIMUMAB
  28. SIMPONI [Concomitant]
     Active Substance: GOLIMUMAB
  29. TRAZODONE HYDROCHLORIDE [Concomitant]
     Active Substance: TRAZODONE HYDROCHLORIDE
  30. VENLAFAXINE HYDROCHLORIDE [Concomitant]
     Active Substance: VENLAFAXINE HYDROCHLORIDE
  31. VENLAFAXINE HYDROCHLORIDE [Concomitant]
     Active Substance: VENLAFAXINE HYDROCHLORIDE
  32. VENLAFAXINE HYDROCHLORIDE [Concomitant]
     Active Substance: VENLAFAXINE HYDROCHLORIDE
  33. MOXIFLOXACIN HYDROCHLORIDE [Interacting]
     Active Substance: MOXIFLOXACIN HYDROCHLORIDE\MOXIFLOXACIN HYDROCHLORIDE MONOHYDRATE
  34. METHOTREXATE SODIUM [Concomitant]
     Active Substance: METHOTREXATE SODIUM

REACTIONS (9)
  - Drug ineffective [Unknown]
  - Drug interaction [Unknown]
  - Diarrhoea [Unknown]
  - Iridocyclitis [Unknown]
  - Joint swelling [Unknown]
  - Juvenile idiopathic arthritis [Unknown]
  - Pain [Unknown]
  - Uveitis [Unknown]
  - Sinusitis [Unknown]
